FAERS Safety Report 13021430 (Version 6)
Quarter: 2017Q4

REPORT INFORMATION
  Report Type: Report from Study
  Country: BE (occurrence: BE)
  Receive Date: 20161213
  Receipt Date: 20171201
  Transmission Date: 20180320
  Serious: Yes (Hospitalization)
  Sender: FDA-Public Use
  Company Number: BE-ROCHE-1862335

PATIENT
  Age: 58 Year
  Sex: Female
  Weight: 60 kg

DRUGS (26)
  1. COBIMETINIB. [Suspect]
     Active Substance: COBIMETINIB
     Indication: COLORECTAL ADENOCARCINOMA
     Dosage: DATE OF MOST RECENT DOSE PRIOR TO ONSET OF FAINTING AND DYSPNOE: 29/NOV/2016 AT 60 MG?MOST RECENT DO
     Route: 048
     Dates: start: 20161122
  2. MINOCYCLINE [Concomitant]
     Active Substance: MINOCYCLINE\MINOCYCLINE HYDROCHLORIDE
     Indication: DERMATITIS ACNEIFORM
     Route: 061
     Dates: start: 20161213
  3. ZOLPIDEM [Concomitant]
     Active Substance: ZOLPIDEM\ZOLPIDEM TARTRATE
     Indication: INSOMNIA
     Route: 048
     Dates: start: 20140203
  4. TRAMADOL. [Concomitant]
     Active Substance: TRAMADOL
     Indication: SPINAL OSTEOARTHRITIS
     Route: 042
     Dates: start: 20161115, end: 20161115
  5. ALIZAPRIDE [Concomitant]
     Active Substance: ALIZAPRIDE
     Route: 042
     Dates: start: 20161122, end: 20161122
  6. BUPIVACAINE. [Concomitant]
     Active Substance: BUPIVACAINE
     Indication: SPINAL OSTEOARTHRITIS
     Route: 014
     Dates: start: 20161117, end: 20161117
  7. AMOXICILLINE [Concomitant]
     Active Substance: AMOXICILLIN
     Indication: PYREXIA
     Route: 042
     Dates: start: 20161206, end: 20161215
  8. BUPIVACAINE. [Concomitant]
     Active Substance: BUPIVACAINE
     Route: 013
     Dates: start: 20161222, end: 20161222
  9. RANITIDINE. [Concomitant]
     Active Substance: RANITIDINE
     Indication: PROPHYLAXIS
     Route: 048
     Dates: start: 20161208, end: 20161223
  10. MINOCYCLINE [Concomitant]
     Active Substance: MINOCYCLINE\MINOCYCLINE HYDROCHLORIDE
     Route: 048
     Dates: start: 20150324, end: 20161122
  11. TPN [Concomitant]
     Active Substance: AMINO ACIDS\DEXTROSE\ELECTROLYTES NOS\SOYBEAN OIL
     Indication: SYNCOPE
     Route: 042
     Dates: start: 20161129, end: 20161130
  12. TRAMADOL. [Concomitant]
     Active Substance: TRAMADOL
     Route: 042
     Dates: start: 20161122, end: 20161122
  13. BETAMETHASON [Concomitant]
     Active Substance: BETAMETHASONE
     Route: 013
     Dates: start: 20161222, end: 20161222
  14. METRONIDAZOLE. [Concomitant]
     Active Substance: METRONIDAZOLE
     Indication: DERMATITIS ACNEIFORM
     Route: 061
     Dates: start: 20161213
  15. MACROGOL [Concomitant]
     Active Substance: POLYETHYLENE GLYCOLS
     Indication: CONSTIPATION
     Route: 048
     Dates: start: 20161214, end: 20161223
  16. IPRATROPIUM BROMIDE. [Concomitant]
     Active Substance: IPRATROPIUM BROMIDE
     Indication: DYSPNOEA
     Dosage: BROMIDE AEROSOL
     Route: 055
     Dates: start: 20161208, end: 20161222
  17. BETAMETHASON [Concomitant]
     Active Substance: BETAMETHASONE
     Indication: SPINAL OSTEOARTHRITIS
     Route: 014
     Dates: start: 20161117, end: 20161117
  18. AMOXICILLINE [Concomitant]
     Active Substance: AMOXICILLIN
     Route: 048
     Dates: start: 20161216, end: 20161216
  19. NADROPARINE [Concomitant]
     Active Substance: NADROPARIN
     Indication: PROPHYLAXIS
     Route: 058
     Dates: start: 20161207
  20. TPN [Concomitant]
     Active Substance: AMINO ACIDS\DEXTROSE\ELECTROLYTES NOS\SOYBEAN OIL
     Indication: DECREASED APPETITE
     Route: 042
     Dates: start: 20161217, end: 20161220
  21. ATEZOLIZUMAB. [Suspect]
     Active Substance: ATEZOLIZUMAB
     Indication: COLORECTAL ADENOCARCINOMA
     Dosage: DATE OF MOST RECENT DOSE PRIOR TO EVENTS ONSET: 22/NOV/2016 AT 11:55 (840 MG)?ON DAY 1 AND 15 IN A 2
     Route: 042
     Dates: start: 20161122
  22. DAFALGAN [Concomitant]
     Active Substance: ACETAMINOPHEN
     Indication: SPINAL OSTEOARTHRITIS
     Route: 048
     Dates: start: 20161109
  23. FUROSEMIDE. [Concomitant]
     Active Substance: FUROSEMIDE
     Indication: PLEURAL EFFUSION
     Route: 048
     Dates: start: 20161115, end: 20161207
  24. ALIZAPRIDE [Concomitant]
     Active Substance: ALIZAPRIDE
     Indication: SPINAL OSTEOARTHRITIS
     Route: 042
     Dates: start: 20161115, end: 20161115
  25. PARACETAMOL [Concomitant]
     Active Substance: ACETAMINOPHEN
     Indication: PAIN
     Route: 042
     Dates: start: 20161206, end: 20161223
  26. NEBIVOLOL. [Concomitant]
     Active Substance: NEBIVOLOL
     Indication: SINUS TACHYCARDIA
     Route: 048
     Dates: start: 20161218

REACTIONS (4)
  - Syncope [Recovered/Resolved]
  - Pneumothorax [Recovered/Resolved]
  - Pleural effusion [Not Recovered/Not Resolved]
  - Hypoxia [Recovered/Resolved]

NARRATIVE: CASE EVENT DATE: 20161129
